FAERS Safety Report 7527844-1 (Version None)
Quarter: 2011Q2

REPORT INFORMATION
  Report Type: 
  Country: None (occurrence: None)
  Receive Date: 20110513
  Receipt Date: 20110113
  Transmission Date: 20111010
  Serious: Yes (Other)
  Sender: FDA-Public Use
  Company Number: 2011PL000005

PATIENT
  Age: 62 Year
  Sex: Female

DRUGS (3)
  1. IMURAN [Suspect]
     Indication: CROHN'S DISEASE
     Dosage: 50 MG;
     Dates: start: 20101113, end: 20101117
  2. HUMIRA [Suspect]
     Dosage: 25 MG;1 IN 2 WKS;
     Dates: start: 20101101
  3. MESALAMINE [Concomitant]

REACTIONS (5)
  - HAEMOGLOBIN DECREASED [None]
  - FATIGUE [None]
  - WHITE BLOOD CELL COUNT DECREASED [None]
  - PANCYTOPENIA [None]
  - PLATELET COUNT DECREASED [None]
